FAERS Safety Report 9426559 (Version 2)
Quarter: 2013Q3

REPORT INFORMATION
  Report Type: Report from Study
  Country: ES (occurrence: ES)
  Receive Date: 20130730
  Receipt Date: 20130731
  Transmission Date: 20140515
  Serious: No
  Sender: FDA-Public Use
  Company Number: ES-ROCHE-1253216

PATIENT
  Age: 80 Year
  Sex: Female
  Weight: 81 kg

DRUGS (2)
  1. PERTUZUMAB [Suspect]
     Indication: PRODUCT USED FOR UNKNOWN INDICATION
     Dosage: LOADING DOSE
     Route: 042
  2. PERTUZUMAB [Suspect]
     Dosage: 2 CYCLES
     Route: 042

REACTIONS (2)
  - Metastases to lymph nodes [Unknown]
  - Treatment failure [Unknown]
